FAERS Safety Report 8549738-5 (Version None)
Quarter: 2012Q3

REPORT INFORMATION
  Report Type: 
  Country: None (occurrence: None)
  Receive Date: 20120730
  Receipt Date: 20120720
  Transmission Date: 20120928
  Serious: Yes (Hospitalization)
  Sender: FDA-Public Use
  Company Number: JP-EISAI INC-E7389-02587-CLI-JP

PATIENT
  Sex: Male
  Weight: 50 kg

DRUGS (10)
  1. BELUID [Concomitant]
     Indication: FLUID REPLACEMENT
     Route: 042
     Dates: start: 20120528
  2. ZOSYN [Concomitant]
     Indication: PNEUMONIA ASPIRATION
     Route: 042
     Dates: start: 20120612, end: 20120614
  3. OXYCONTIN [Concomitant]
     Indication: CANCER PAIN
     Route: 048
     Dates: start: 20120606, end: 20120614
  4. VITAMEDIN [Concomitant]
     Indication: VITAMIN SUPPLEMENTATION
     Route: 042
     Dates: start: 20120529
  5. PHYSIO 35 [Concomitant]
     Indication: FLUID REPLACEMENT
     Route: 042
     Dates: start: 20120609, end: 20120617
  6. FLURBIPROFEN [Concomitant]
     Indication: ANTIPYRESIS
     Route: 042
     Dates: start: 20120603
  7. UBRETID [Concomitant]
     Indication: URINARY RETENTION
     Route: 048
     Dates: start: 20120612
  8. FLIVAS [Concomitant]
     Indication: URINARY RETENTION
     Route: 048
     Dates: start: 20120612
  9. EPIRUBICIN HYDROCHLORIDE [Suspect]
     Route: 041
     Dates: start: 20120525, end: 20120525
  10. FENTANYL CITRATE [Concomitant]
     Indication: CANCER PAIN
     Dates: start: 20120614

REACTIONS (3)
  - HYPONATRAEMIA [None]
  - PNEUMONIA [None]
  - HYPOPHOSPHATAEMIA [None]
